FAERS Safety Report 8102974-4 (Version None)
Quarter: 2012Q1

REPORT INFORMATION
  Report Type: 
  Country: None (occurrence: None)
  Receive Date: 20120201
  Receipt Date: 20120127
  Transmission Date: 20120608
  Serious: Yes (Life-Threatening, Hospitalization, Disabling, Other)
  Sender: FDA-Public Use
  Company Number: FR-ASTELLAS-2011EU001016

PATIENT
  Sex: Male
  Weight: 70 kg

DRUGS (10)
  1. PROGRAF [Suspect]
     Indication: LUNG TRANSPLANT
     Dosage: 6 MG, UNKNOWN/D
     Route: 048
     Dates: start: 20040315, end: 20040630
  2. PROGRAF [Suspect]
     Dosage: 5 MG, UNKNOWN/D
     Route: 048
     Dates: start: 20040630, end: 20050126
  3. CORDARONE [Concomitant]
     Dosage: UNK
     Route: 048
     Dates: start: 20010413
  4. PROGRAF [Suspect]
     Dosage: 3 MG, UNKNOWN/D
     Route: 048
     Dates: start: 20050601
  5. PROGRAF [Suspect]
     Dosage: 4 MG, UNKNOWN/D
     Route: 048
     Dates: start: 20050126, end: 20050601
  6. MYCOPHENOLATE MOFETIL (CELLCEPT) [Concomitant]
     Indication: LUNG TRANSPLANT
     Dosage: 2 G, UNKNOWN/D
     Route: 048
     Dates: start: 20010413
  7. FLUTICASONE PROPIONATE/SALMETEROL [Concomitant]
     Dosage: 2 DF, UNKNOWN/D
     Route: 055
     Dates: start: 20010413
  8. ZITHROMAX [Concomitant]
     Dosage: 250 MG, UNKNOWN/D
     Route: 048
     Dates: start: 20010413
  9. KAYEXALATE [Concomitant]
     Dosage: UNK
     Route: 048
     Dates: start: 20010413
  10. RENAGEL [Concomitant]
     Dosage: 4800 MG, UNKNOWN/D
     Route: 048
     Dates: start: 20010413

REACTIONS (5)
  - MITRAL VALVE REPLACEMENT [None]
  - RENAL FAILURE [None]
  - CHOLECYSTECTOMY [None]
  - OFF LABEL USE [None]
  - RENAL TRANSPLANT [None]
